FAERS Safety Report 16204017 (Version 3)
Quarter: 2020Q3

REPORT INFORMATION
  Report Type: Report from Study
  Country: US (occurrence: US)
  Receive Date: 20190416
  Receipt Date: 20190529
  Transmission Date: 20201105
  Serious: Yes (Death)
  Sender: FDA-Public Use
  Company Number: US-PFIZER INC-2019155989

PATIENT
  Age: 75 Year
  Sex: Male
  Weight: 93 kg

DRUGS (13)
  1. PROCHLORPERAZINE MALEATE. [Concomitant]
     Active Substance: PROCHLORPERAZINE MALEATE
     Indication: NAUSEA
     Dosage: 10 MG, AS NEEDED
     Route: 048
     Dates: start: 20180802, end: 20190322
  2. MAALOX VISC LIDOCAINE BENADRYL ELIX [Concomitant]
     Indication: MUCOSAL INFLAMMATION
     Dosage: 15 ML, PRN
     Route: 048
     Dates: start: 20160806, end: 20190322
  3. VITAMIN D3 [Concomitant]
     Active Substance: CHOLECALCIFEROL
     Indication: SUPPLEMENTATION THERAPY
     Dosage: 2000 UNIT
     Route: 048
     Dates: start: 201807, end: 20190322
  4. TEMODAR [Suspect]
     Active Substance: TEMOZOLOMIDE
     Indication: SMALL CELL LUNG CANCER
     Dosage: 85 MG, DAYS 1?5
     Route: 048
     Dates: start: 20190219, end: 20190223
  5. BUDESONIDE/FORMOTEROL FUMARATE [Concomitant]
     Indication: CHRONIC OBSTRUCTIVE PULMONARY DISEASE
     Dosage: [BUDESONIDE 160MCG]/[FORMOTEROL 4.5 MCG]
     Route: 055
     Dates: start: 2012, end: 20190322
  6. CALCIUM ACETATE. [Concomitant]
     Active Substance: CALCIUM ACETATE
     Indication: SUPPLEMENTATION THERAPY
     Dosage: 500 MG, PRN
     Route: 048
     Dates: start: 201807, end: 20190322
  7. POTASSIUM CHLORIDE. [Concomitant]
     Active Substance: POTASSIUM CHLORIDE
     Indication: SUPPLEMENTATION THERAPY
     Dosage: 99 MG, UNK
     Route: 048
     Dates: start: 201807, end: 20190322
  8. ZOLPIDEM TARTRATE. [Concomitant]
     Active Substance: ZOLPIDEM TARTRATE
     Indication: INSOMNIA
     Dosage: 10 MG, AS NEEDED
     Route: 048
     Dates: start: 20180822, end: 20190322
  9. ALBUTEROL SULFATE. [Concomitant]
     Active Substance: ALBUTEROL SULFATE
     Indication: CHRONIC OBSTRUCTIVE PULMONARY DISEASE
     Dosage: 90 MCG, BID
     Route: 055
     Dates: start: 201701, end: 20190322
  10. CALCIUM CARBONATE. [Concomitant]
     Active Substance: CALCIUM CARBONATE
     Indication: DYSPEPSIA
     Dosage: 1000 MG, PRN
     Route: 048
     Dates: start: 201812, end: 20190322
  11. VITAMIN B12 [Concomitant]
     Active Substance: CYANOCOBALAMIN
     Indication: SUPPLEMENTATION THERAPY
     Dosage: 500 MCG, UNK
     Route: 048
     Dates: start: 201807, end: 20190322
  12. ZOLEDRONIC ACID [Concomitant]
     Active Substance: ZOLEDRONIC ACID
     Indication: METASTASES TO BONE
     Dosage: 4 MG, EVERY 3 MONTHS
     Route: 042
     Dates: start: 20190123, end: 20190322
  13. TALAZOPARIB. [Suspect]
     Active Substance: TALAZOPARIB
     Indication: SMALL CELL LUNG CANCER
     Dosage: 0.75 MG, DAY 1?28
     Route: 048
     Dates: start: 20190219, end: 20190303

REACTIONS (1)
  - Neoplasm progression [Fatal]

NARRATIVE: CASE EVENT DATE: 20190322
